FAERS Safety Report 24954967 (Version 2)
Quarter: 2025Q2

REPORT INFORMATION
  Report Type: Spontaneous
  Country: US (occurrence: US)
  Receive Date: 20250211
  Receipt Date: 20250524
  Transmission Date: 20250717
  Serious: Yes (Life-Threatening, Hospitalization, Other)
  Sender: ACCORD
  Company Number: US-Accord-468241

PATIENT
  Age: 49 Year
  Sex: Female
  Weight: 54 kg

DRUGS (14)
  1. PEMETREXED [Suspect]
     Active Substance: PEMETREXED
     Indication: Epithelioid mesothelioma
     Route: 042
     Dates: start: 20220801, end: 20221026
  2. CARBOPLATIN [Suspect]
     Active Substance: CARBOPLATIN
     Indication: Epithelioid mesothelioma
     Route: 042
     Dates: start: 20220801, end: 20220801
  3. PAXIL [Concomitant]
     Active Substance: PAROXETINE HYDROCHLORIDE
     Dates: start: 20220614
  4. ZYPREXA [Concomitant]
     Active Substance: OLANZAPINE
     Dates: start: 20220608
  5. COMPAZINE [Concomitant]
     Active Substance: PROCHLORPERAZINE MALEATE
     Dates: start: 20201006
  6. VENOFER [Concomitant]
     Active Substance: IRON SUCROSE
     Dates: start: 20220526, end: 20221031
  7. DIPHENHYDRAMINE [Concomitant]
     Active Substance: DIPHENHYDRAMINE
     Dates: start: 20221026, end: 20221026
  8. DEXAMETHASONE [Concomitant]
     Active Substance: DEXAMETHASONE
     Dates: start: 20221026, end: 20221026
  9. LOPERAMIDE [Concomitant]
     Active Substance: LOPERAMIDE
     Dates: start: 20220913, end: 20221013
  10. ATIVAN [Concomitant]
     Active Substance: LORAZEPAM
     Dates: start: 20221103, end: 20230406
  11. ZOLPIDEM [Concomitant]
     Active Substance: ZOLPIDEM TARTRATE
     Dates: start: 20200805, end: 20230829
  12. MAGNESIUM SULFATE [Concomitant]
     Active Substance: MAGNESIUM SULFATE
     Dates: start: 20221031
  13. CARBOPLATIN [Suspect]
     Active Substance: CARBOPLATIN
     Indication: Epithelioid mesothelioma
     Route: 042
     Dates: start: 20220824, end: 20220824
  14. PEMETREXED [Suspect]
     Active Substance: PEMETREXED
     Indication: Epithelioid mesothelioma
     Route: 042
     Dates: start: 20221026, end: 20221026

REACTIONS (4)
  - Gastroenteritis [Recovered/Resolved]
  - Hypokalaemia [Recovered/Resolved]
  - Syncope [Recovered/Resolved]
  - Nausea [Recovered/Resolved]

NARRATIVE: CASE EVENT DATE: 20221026
